FAERS Safety Report 5413151-X (Version None)
Quarter: 2007Q3

REPORT INFORMATION
  Report Type: 
  Country: None (occurrence: None)
  Receive Date: 20070810
  Receipt Date: 20070731
  Transmission Date: 20080115
  Serious: Yes (Hospitalization)
  Sender: FDA-Public Use
  Company Number: CERZ-11786

PATIENT
  Age: 50 Year
  Sex: Male

DRUGS (1)
  1. CEREZYME [Suspect]
     Indication: GAUCHER'S DISEASE
     Dosage: 32 U/KG Q2WKS IV
     Route: 042
     Dates: start: 20060217

REACTIONS (7)
  - FALL [None]
  - FRACTURED SACRUM [None]
  - HIP FRACTURE [None]
  - PAIN [None]
  - PELVIC FRACTURE [None]
  - RIB FRACTURE [None]
  - WRIST FRACTURE [None]
